FAERS Safety Report 13615342 (Version 1)
Quarter: 2017Q2

REPORT INFORMATION
  Report Type: Spontaneous
  Country: US (occurrence: US)
  Receive Date: 20170606
  Receipt Date: 20170606
  Transmission Date: 20170830
  Serious: Yes (Life-Threatening, Hospitalization, Other)
  Sender: FDA-Public Use
  Company Number: US-GLAXOSMITHKLINE-US2017GSK085832

PATIENT
  Age: 29 Year
  Sex: Male

DRUGS (3)
  1. LAMICTAL [Suspect]
     Active Substance: LAMOTRIGINE
     Indication: BIPOLAR DISORDER
     Dosage: 50 MG, QD
     Dates: start: 201702
  2. VRAYLAR [Concomitant]
     Active Substance: CARIPRAZINE
     Indication: BIPOLAR DISORDER
  3. LAMICTAL [Suspect]
     Active Substance: LAMOTRIGINE
     Dosage: 100 MG, QD
     Dates: end: 201703

REACTIONS (12)
  - Adverse drug reaction [Unknown]
  - Speech disorder [Unknown]
  - Musculoskeletal stiffness [Unknown]
  - Abnormal behaviour [Unknown]
  - Pyrexia [Unknown]
  - Lymphadenopathy [Unknown]
  - Spinal pain [Unknown]
  - Loss of consciousness [Recovered/Resolved]
  - Amnesia [Unknown]
  - Tendon discomfort [Unknown]
  - Foaming at mouth [Unknown]
  - Seizure [Unknown]

NARRATIVE: CASE EVENT DATE: 20170412
